FAERS Safety Report 20224156 (Version 1)
Quarter: 2021Q4

REPORT INFORMATION
  Report Type: Spontaneous
  Country: US (occurrence: None)
  Receive Date: 20211223
  Receipt Date: 20211223
  Transmission Date: 20220304
  Serious: Yes (Hospitalization)
  Sender: FDA-Public Use
  Company Number: None

PATIENT
  Age: 65 Year
  Sex: Male

DRUGS (3)
  1. RETACRIT [Suspect]
     Active Substance: EPOETIN ALFA-EPBX
     Dosage: OTHER QUANTITY : 10000 UNIT/ML;?FREQUENCY : EVERY OTHER WEEK;?
  2. MUCINEX DM TAB [Concomitant]
  3. STELARA [Concomitant]
     Active Substance: USTEKINUMAB

REACTIONS (3)
  - Hospitalisation [None]
  - Product storage error [None]
  - Therapy interrupted [None]

NARRATIVE: CASE EVENT DATE: 20211203
